FAERS Safety Report 15936229 (Version 2)
Quarter: 2019Q1

REPORT INFORMATION
  Report Type: Spontaneous
  Country: DE (occurrence: DE)
  Receive Date: 20190208
  Receipt Date: 20190227
  Transmission Date: 20190417
  Serious: Yes (Hospitalization)
  Sender: FDA-Public Use
  Company Number: DE-ASTELLAS-2019US004223

PATIENT
  Age: 82 Year
  Sex: Male
  Weight: 60 kg

DRUGS (1)
  1. XTANDI [Suspect]
     Active Substance: ENZALUTAMIDE
     Indication: HORMONE-REFRACTORY PROSTATE CANCER
     Route: 048
     Dates: start: 20181220

REACTIONS (1)
  - Urinary bladder haemorrhage [Recovering/Resolving]

NARRATIVE: CASE EVENT DATE: 20190124
